FAERS Safety Report 11815848 (Version 2)
Quarter: 2015Q4

REPORT INFORMATION
  Report Type: Spontaneous
  Country: US (occurrence: US)
  Receive Date: 20151209
  Receipt Date: 20151215
  Transmission Date: 20160305
  Serious: No
  Sender: FDA-Public Use
  Company Number: US-ASTRAZENECA-2015SE87153

PATIENT
  Age: 62 Year
  Sex: Female

DRUGS (2)
  1. OLAPARIB [Suspect]
     Active Substance: OLAPARIB
     Route: 048
  2. OLAPARIB [Suspect]
     Active Substance: OLAPARIB
     Route: 048
     Dates: start: 20150904

REACTIONS (3)
  - Thrombocytopenia [Unknown]
  - Vomiting [Unknown]
  - Nausea [Unknown]

NARRATIVE: CASE EVENT DATE: 20150826
